FAERS Safety Report 4795130-9 (Version None)
Quarter: 2005Q4

REPORT INFORMATION
  Report Type: 
  Country: None (occurrence: None)
  Receive Date: 20051006
  Receipt Date: 20050912
  Transmission Date: 20060501
  Serious: Yes (Death, Hospitalization, Other)
  Sender: FDA-Public Use
  Company Number: 2005JP001864

PATIENT
  Age: 68 Year
  Sex: Male

DRUGS (3)
  1. PROGRAF [Suspect]
     Indication: RENAL TRANSPLANT
     Dosage: 8.00 MG UNKNOWN/D, ORAL
     Route: 048
     Dates: start: 20000101
  2. PREDNISONE [Suspect]
     Indication: RENAL TRANSPLANT
     Dosage: 5.00 MG, UNKNOWN /D
     Dates: start: 20000101
  3. MYCOPHENOLATE MOFETIL (MYCOPHENOLATE MOFETIL) [Suspect]
     Indication: RENAL TRANSPLANT
     Dosage: 1000.00M MG, UNKNOWN/D
     Dates: start: 20000101

REACTIONS (9)
  - BORDERLINE LEPROSY [None]
  - CELLULITIS [None]
  - FALL [None]
  - FEMUR FRACTURE [None]
  - LEPROMATOUS LEPROSY [None]
  - PNEUMONIA ASPIRATION [None]
  - PNEUMONIA BACTERIAL [None]
  - SEBORRHOEIC DERMATITIS [None]
  - SEPTIC SHOCK [None]
